FAERS Safety Report 7440380-6 (Version None)
Quarter: 2011Q2

REPORT INFORMATION
  Report Type: 
  Country: None (occurrence: None)
  Receive Date: 20110427
  Receipt Date: 20110425
  Transmission Date: 20111010
  Serious: No
  Sender: FDA-Public Use
  Company Number: US-PFIZER INC-2011044040

PATIENT
  Sex: Male
  Weight: 82 kg

DRUGS (3)
  1. CHANTIX [Suspect]
     Dosage: 1 MG, 2X/DAY
     Dates: start: 20110101, end: 20110224
  2. CHANTIX [Suspect]
     Dosage: UNK, AS DIRECTED
     Route: 048
     Dates: start: 20110217, end: 20110317
  3. CHANTIX [Suspect]
     Indication: SMOKING CESSATION THERAPY
     Dosage: 0.5 MG, 1X/DAY
     Route: 048
     Dates: start: 20110119, end: 20110101

REACTIONS (1)
  - APHTHOUS STOMATITIS [None]
